FAERS Safety Report 20488457 (Version 1)
Quarter: 2022Q1

REPORT INFORMATION
  Report Type: Spontaneous
  Country: US (occurrence: None)
  Receive Date: 20220218
  Receipt Date: 20220218
  Transmission Date: 20220423
  Serious: Yes (Other)
  Sender: FDA-Public Use
  Company Number: 2022A070974

PATIENT
  Sex: Male

DRUGS (1)
  1. BUDESONIDE\FORMOTEROL\GLYCOPYRRONIUM [Suspect]
     Active Substance: BUDESONIDE\FORMOTEROL\GLYCOPYRRONIUM
     Indication: Chronic obstructive pulmonary disease
     Dosage: UNKNOWN
     Route: 055
     Dates: start: 202109

REACTIONS (6)
  - COVID-19 [Recovered/Resolved]
  - Lung neoplasm malignant [Unknown]
  - Dyspnoea [Unknown]
  - Asbestosis [Unknown]
  - Drug delivery system malfunction [Unknown]
  - Drug dose omission by device [Unknown]
